FAERS Safety Report 5859881-7 (Version None)
Quarter: 2008Q3

REPORT INFORMATION
  Report Type: 
  Country: None (occurrence: None)
  Receive Date: 20080818
  Receipt Date: 20080630
  Transmission Date: 20090109
  Serious: No
  Sender: FDA-Public Use
  Company Number: WAES 0807USA00022

PATIENT
  Age: 71 Year
  Sex: Male

DRUGS (8)
  1. JANUVIA [Suspect]
     Indication: DIABETES MELLITUS
     Dosage: 100 MG/DAILY/PO
     Route: 048
     Dates: start: 20080627
  2. ADRIAMYCIN RDF [Concomitant]
  3. EMEND [Concomitant]
  4. ONCOVIN [Concomitant]
  5. ANTINEOPLASTIC (UNSPECIFIED) [Concomitant]
  6. HYDROCHLOROTHIAZIDE [Concomitant]
  7. LOVASTATIN [Concomitant]
  8. PREDNISONE TAB [Concomitant]

REACTIONS (1)
  - DRUG INEFFECTIVE [None]
